FAERS Safety Report 11596809 (Version 1)
Quarter: 2015Q4

REPORT INFORMATION
  Report Type: Spontaneous
  Country: US (occurrence: None)
  Receive Date: 20151005
  Receipt Date: 20151005
  Transmission Date: 20160304
  Serious: Yes (Disabling, Other)
  Sender: FDA-Public Use
  Company Number: None

PATIENT
  Age: 44 Year
  Sex: Female
  Weight: 68.04 kg

DRUGS (3)
  1. COQ10 [Concomitant]
     Active Substance: UBIDECARENONE
  2. CIPROFLOXACIN 500 MG GENERIC [Suspect]
     Active Substance: CIPROFLOXACIN
     Indication: URINARY TRACT INFECTION
     Route: 048
     Dates: start: 20140128, end: 20140128
  3. D RIBOSE ALA L CARNITINE [Concomitant]

REACTIONS (11)
  - Tachycardia [None]
  - Dyskinesia [None]
  - Dysarthria [None]
  - Speech disorder [None]
  - Vertigo [None]
  - Feeling abnormal [None]
  - Neuropathy peripheral [None]
  - Palpitations [None]
  - Depersonalisation [None]
  - Head discomfort [None]
  - Head titubation [None]

NARRATIVE: CASE EVENT DATE: 20140128
